FAERS Safety Report 12778956 (Version 1)
Quarter: 2016Q3

REPORT INFORMATION
  Report Type: Spontaneous
  Country: US (occurrence: US)
  Receive Date: 20160926
  Receipt Date: 20160926
  Transmission Date: 20161109
  Serious: No
  Sender: FDA-Public Use
  Company Number: US-JAZZ-2016-US-011392

PATIENT
  Age: 53 Year
  Sex: Male

DRUGS (18)
  1. NORCO [Concomitant]
     Active Substance: ACETAMINOPHEN\HYDROCODONE BITARTRATE
  2. CHANTIX [Concomitant]
     Active Substance: VARENICLINE TARTRATE
  3. TOPIRAMATE. [Concomitant]
     Active Substance: TOPIRAMATE
  4. XYREM [Suspect]
     Active Substance: SODIUM OXYBATE
     Dosage: 3 G, BID
     Route: 048
     Dates: start: 201401
  5. ASPIRIN. [Concomitant]
     Active Substance: ASPIRIN
  6. CELEXA [Concomitant]
     Active Substance: CITALOPRAM HYDROBROMIDE
  7. OMEPRAZOLE. [Concomitant]
     Active Substance: OMEPRAZOLE
  8. SPIRIVA [Concomitant]
     Active Substance: TIOTROPIUM BROMIDE MONOHYDRATE
  9. OMEGA 3-6-9 [Concomitant]
     Active Substance: FISH OIL
  10. LEVOTHYROXINE SODIUM. [Concomitant]
     Active Substance: LEVOTHYROXINE SODIUM
  11. MUCINEX [Concomitant]
     Active Substance: GUAIFENESIN
  12. FOSAMAX [Concomitant]
     Active Substance: ALENDRONATE SODIUM
  13. PRAVASTATIN SODIUM. [Concomitant]
     Active Substance: PRAVASTATIN SODIUM
  14. CYCLOBENZAPRINE [Concomitant]
     Active Substance: CYCLOBENZAPRINE
  15. XYREM [Suspect]
     Active Substance: SODIUM OXYBATE
     Indication: NARCOLEPSY
     Dosage: 2.25 G, BID
     Route: 048
     Dates: start: 200509, end: 200510
  16. KRILL OIL [Concomitant]
     Active Substance: DIETARY SUPPLEMENT
  17. TRAZODONE HYDROCHLORIDE. [Concomitant]
     Active Substance: TRAZODONE HYDROCHLORIDE
  18. XYREM [Suspect]
     Active Substance: SODIUM OXYBATE
     Dosage: 4.5 G, BID
     Route: 048
     Dates: start: 200510, end: 2013

REACTIONS (3)
  - Intentional product use issue [Unknown]
  - Pain in extremity [Not Recovered/Not Resolved]
  - Dry mouth [Not Recovered/Not Resolved]

NARRATIVE: CASE EVENT DATE: 200509
